FAERS Safety Report 4742548-6 (Version None)
Quarter: 2005Q3

REPORT INFORMATION
  Report Type: 
  Country: None (occurrence: None)
  Receive Date: 20050811
  Receipt Date: 20050526
  Transmission Date: 20060218
  Serious: Yes (Other)
  Sender: FDA-Public Use
  Company Number: JP-BRISTOL-MYERS SQUIBB COMPANY-12985081

PATIENT
  Sex: Male

DRUGS (3)
  1. PARAPLATIN [Suspect]
     Indication: SMALL CELL LUNG CANCER STAGE UNSPECIFIED
     Route: 042
     Dates: start: 20040612, end: 20050404
  2. LASTET [Suspect]
     Indication: SMALL CELL LUNG CANCER STAGE UNSPECIFIED
     Route: 042
     Dates: start: 20041206, end: 20050406
  3. RADIATION THERAPY [Suspect]
     Dates: start: 20041206, end: 20050330

REACTIONS (1)
  - INTERSTITIAL LUNG DISEASE [None]
